FAERS Safety Report 9603348 (Version 1)
Quarter: 2013Q4

REPORT INFORMATION
  Report Type: Spontaneous
  Country: ID (occurrence: ID)
  Receive Date: 20131007
  Receipt Date: 20131007
  Transmission Date: 20140711
  Serious: Yes (Life-Threatening, Hospitalization, Other)
  Sender: FDA-Public Use
  Company Number: ID-MERCK-1310USA001975

PATIENT
  Age: 51 Year
  Sex: Male

DRUGS (6)
  1. SAPHRIS [Suspect]
     Indication: BIPOLAR DISORDER
     Dosage: 5 MG, BID
     Route: 060
     Dates: start: 20130802, end: 20130816
  2. SAPHRIS [Suspect]
     Dosage: 1X5MG
     Route: 060
     Dates: start: 20121128
  3. SAPHRIS [Suspect]
     Dosage: 2X10 MG,
     Route: 060
  4. RISPERIDONE [Suspect]
     Indication: BIPOLAR DISORDER
     Dosage: 1 MG, BID
     Route: 048
     Dates: start: 20130802, end: 20130816
  5. RISPERIDONE [Suspect]
     Dosage: 2X1MG
     Route: 048
     Dates: start: 20121128
  6. RISPERIDONE [Suspect]
     Dosage: 2X2MG
     Route: 048

REACTIONS (1)
  - Neuroleptic malignant syndrome [Recovered/Resolved]
